FAERS Safety Report 18879492 (Version 1)
Quarter: 2021Q1

REPORT INFORMATION
  Report Type: Report from Study
  Country: US (occurrence: US)
  Receive Date: 20210211
  Receipt Date: 20210211
  Transmission Date: 20210420
  Serious: Yes (Hospitalization)
  Sender: FDA-Public Use
  Company Number: US-VERTEX PHARMACEUTICALS-2020-025572

PATIENT
  Age: 7 Year
  Sex: Male

DRUGS (20)
  1. PULMOZYME [Concomitant]
     Active Substance: DORNASE ALFA
  2. LEVOFLOXACIN. [Concomitant]
     Active Substance: LEVOFLOXACIN
  3. TOBRAMYCIN. [Concomitant]
     Active Substance: TOBRAMYCIN
     Dosage: NEBULIZATION
  4. OMEPRAZOLE. [Concomitant]
     Active Substance: OMEPRAZOLE
  5. LORATADIN [Concomitant]
     Active Substance: LORATADINE
  6. VITAMIN D3 [Concomitant]
     Active Substance: CHOLECALCIFEROL
  7. CAYSTON [Concomitant]
     Active Substance: AZTREONAM
  8. QVAR AER [Concomitant]
  9. BACITRACIN. [Concomitant]
     Active Substance: BACITRACIN
     Dosage: INJECTION
  10. DOCUSATE [Concomitant]
     Active Substance: DOCUSATE
  11. BACTRICIN [SULFAMETHOXAZOLE;TRIMETHOPRIM] [Concomitant]
  12. HYPERSAL [Concomitant]
     Active Substance: SODIUM CHLORIDE
     Dosage: NEBULIZATION
  13. MIRALAX [Concomitant]
     Active Substance: POLYETHYLENE GLYCOL 3350
  14. ERYTHROMYCIN. [Concomitant]
     Active Substance: ERYTHROMYCIN
     Dosage: POWDER
  15. IPRATROPIUM [Concomitant]
     Active Substance: IPRATROPIUM
  16. CIPROFLOXACIN. [Concomitant]
     Active Substance: CIPROFLOXACIN
  17. CREON [Concomitant]
     Active Substance: PANCRELIPASE AMYLASE\PANCRELIPASE LIPASE\PANCRELIPASE PROTEASE
  18. ORKAMBI [Suspect]
     Active Substance: IVACAFTOR\LUMACAFTOR
     Indication: CYSTIC FIBROSIS
     Dosage: 1 DOSAGE FORM, BID
     Route: 048
     Dates: start: 20190111, end: 20210204
  19. PREDNISOLONE. [Concomitant]
     Active Substance: PREDNISOLONE
  20. NYSTATIN. [Concomitant]
     Active Substance: NYSTATIN

REACTIONS (1)
  - Infective pulmonary exacerbation of cystic fibrosis [Recovered/Resolved]

NARRATIVE: CASE EVENT DATE: 20201226
